FAERS Safety Report 9630287 (Version 4)
Quarter: 2014Q2

REPORT INFORMATION
  Report Type: Spontaneous
  Country: AT (occurrence: AT)
  Receive Date: 20131017
  Receipt Date: 20140620
  Transmission Date: 20141212
  Serious: Yes (Hospitalization)
  Sender: FDA-Public Use
  Company Number: AT-PFIZER INC-2013294822

PATIENT
  Age: 64 Year
  Sex: Female
  Weight: 120 kg

DRUGS (15)
  1. LYRICA [Suspect]
     Dosage: 600 MG, 1X/DAY
     Dates: start: 2009
  2. AMLODIPINE BESILATE [Suspect]
     Dosage: 5 MG, 1X/DAY
     Dates: start: 2004
  3. SIMVASTATIN [Suspect]
     Dosage: 20 MG, 1X/DAY
     Dates: start: 2011
  4. AMELIOR [Suspect]
     Dosage: UNK
     Dates: start: 2011
  5. PAROXAT [Interacting]
     Dosage: 40 MG, 1X/DAY
     Dates: start: 20130901, end: 20130912
  6. SAROTEN [Interacting]
     Dosage: 50 MG, 1X/DAY
     Dates: start: 20130719, end: 20130721
  7. SAROTEN [Interacting]
     Dosage: 75 MG, 1X/DAY
     Dates: start: 20130722, end: 20130722
  8. SAROTEN [Interacting]
     Dosage: 100 MG, 1X/DAY
     Dates: start: 20130723, end: 20130914
  9. SEROQUEL XR [Suspect]
     Dosage: 400 MG, 1X/DAY
     Dates: start: 201101
  10. PRAXITEN ^PLIVA^ [Suspect]
     Dosage: UNK
     Dates: start: 201101
  11. EUTHYROX [Suspect]
     Dosage: 125 UG, 1X/DAY
     Dates: start: 2000
  12. PANTOLOC [Suspect]
     Dosage: 40 MG, 1X/DAY
     Dates: start: 2004
  13. GLUCOPHAGE [Suspect]
     Dosage: 2000 MG, 1X/DAY
     Dates: start: 2011
  14. DIAMICRON [Suspect]
     Dosage: 30 MG, 1X/DAY
     Dates: start: 2012
  15. FENTANYL TTS [Suspect]
     Dosage: 37.5 MG, 1X/DAY
     Dates: start: 201301

REACTIONS (6)
  - Drug interaction [Recovered/Resolved]
  - Altered state of consciousness [Recovered/Resolved]
  - Somnolence [Unknown]
  - Disorientation [Unknown]
  - Fatigue [Unknown]
  - Dizziness [Unknown]
